FAERS Safety Report 20082337 (Version 2)
Quarter: 2022Q1

REPORT INFORMATION
  Report Type: Spontaneous
  Country: JP (occurrence: JP)
  Receive Date: 20211117
  Receipt Date: 20220324
  Transmission Date: 20220423
  Serious: Yes (Death, Other)
  Sender: FDA-Public Use
  Company Number: JP-JAZZ-2021-JP-020549

PATIENT
  Age: 67 Year
  Sex: Male
  Weight: 70.2 kg

DRUGS (1)
  1. DEFITELIO [Suspect]
     Active Substance: DEFIBROTIDE SODIUM
     Indication: Venoocclusive liver disease
     Dosage: 25MG/KG/24 HOURS
     Route: 042
     Dates: start: 20210804, end: 20210813

REACTIONS (3)
  - Pulmonary alveolar haemorrhage [Fatal]
  - Respiratory failure [Unknown]
  - Off label use [Unknown]

NARRATIVE: CASE EVENT DATE: 20210801
